FAERS Safety Report 4619671-X (Version None)
Quarter: 2005Q1

REPORT INFORMATION
  Report Type: 
  Country: None (occurrence: None)
  Receive Date: 20050324
  Receipt Date: 20050316
  Transmission Date: 20050727
  Serious: Yes (Other)
  Sender: FDA-Public Use
  Company Number: 2005045838

PATIENT
  Sex: Male
  Weight: 112.9457 kg

DRUGS (6)
  1. NORVASC [Suspect]
     Indication: HYPERTENSION
     Dosage: 5 MG (5 MG, DAILY), ORAL
     Route: 048
  2. LIPITOR [Suspect]
     Indication: BLOOD CHOLESTEROL
     Dosage: 40 MG (40 MG, DAILY), ORAL
     Route: 048
  3. INSULIN LISPRO (INSULIN LISPRO) [Concomitant]
  4. INSULIN GLARGINE (INSULIN GLARGINE) [Concomitant]
  5. CAPTOPRIL [Concomitant]
  6. METOPROLOL TARTRATE [Concomitant]

REACTIONS (2)
  - BLADDER CANCER [None]
  - LEUKAEMIA [None]
